FAERS Safety Report 18939691 (Version 1)
Quarter: 2021Q1

REPORT INFORMATION
  Report Type: Report from Study
  Country: US (occurrence: US)
  Receive Date: 20210225
  Receipt Date: 20210225
  Transmission Date: 20210420
  Serious: Yes (Other)
  Sender: FDA-Public Use
  Company Number: NVSC2021US036635

PATIENT
  Sex: Female

DRUGS (2)
  1. AFINITOR [Suspect]
     Active Substance: EVEROLIMUS
     Indication: PRODUCT USED FOR UNKNOWN INDICATION
     Dosage: UNK
     Route: 065
  2. IBRANCE [Suspect]
     Active Substance: PALBOCICLIB
     Indication: PRODUCT USED FOR UNKNOWN INDICATION
     Dosage: UNK
     Route: 065

REACTIONS (8)
  - Bone cancer [Unknown]
  - Hyperthyroidism [Unknown]
  - Neoplasm malignant [Unknown]
  - Thyroid neoplasm [Unknown]
  - Lymphadenopathy [Unknown]
  - Breast cancer [Unknown]
  - Spinal disorder [Unknown]
  - Bone pain [Unknown]

NARRATIVE: CASE EVENT DATE: 2014
